FAERS Safety Report 11192256 (Version 1)
Quarter: 2015Q2

REPORT INFORMATION
  Report Type: Report from Study
  Country: US (occurrence: US)
  Receive Date: 20150616
  Receipt Date: 20150616
  Transmission Date: 20150821
  Serious: Yes (Other)
  Sender: FDA-Public Use
  Company Number: US-JNJFOC-20150604774

PATIENT
  Age: 49 Year
  Sex: Male

DRUGS (1)
  1. STELARA [Suspect]
     Active Substance: USTEKINUMAB
     Indication: PSORIASIS
     Route: 058
     Dates: start: 20130809, end: 20130903

REACTIONS (9)
  - Acute kidney injury [Unknown]
  - Diabetic gastroparesis [Unknown]
  - Acute kidney injury [Unknown]
  - Diabetic foot [Unknown]
  - Skin ulcer [Unknown]
  - Cellulitis [Unknown]
  - Encephalopathy [Unknown]
  - Hyponatraemia [Unknown]
  - Cystitis [Unknown]

NARRATIVE: CASE EVENT DATE: 20131221
